FAERS Safety Report 8585314-6 (Version None)
Quarter: 2012Q2

REPORT INFORMATION
  Report Type: 
  Country: None (occurrence: None)
  Receive Date: 20120423
  Receipt Date: 20100416
  Transmission Date: 20120825
  Serious: Yes (Other)
  Sender: FDA-Public Use
  Company Number: PHEH2010US01383

PATIENT
  Age: 61 Year
  Sex: Female

DRUGS (2)
  1. EXJADE [Suspect]
     Indication: HAEMOCHROMATOSIS
     Dosage: 1000 MG, QD (DAILY), ORAL 500 MG DAILY, ORAL
     Route: 048
     Dates: start: 20091202
  2. EXJADE [Suspect]
     Indication: SERUM FERRITIN INCREASED
     Dosage: 1000 MG, QD (DAILY), ORAL 500 MG DAILY, ORAL
     Route: 048
     Dates: start: 20091202

REACTIONS (10)
  - MOOD ALTERED [None]
  - PALLOR [None]
  - LIP SWELLING [None]
  - ANXIETY [None]
  - DRUG HYPERSENSITIVITY [None]
  - TREMOR [None]
  - CONSTIPATION [None]
  - STOMATITIS [None]
  - CHEILITIS [None]
  - OEDEMA MOUTH [None]
